FAERS Safety Report 15225895 (Version 1)
Quarter: 2018Q3

REPORT INFORMATION
  Report Type: Spontaneous
  Country: US (occurrence: US)
  Receive Date: 20180801
  Receipt Date: 20180801
  Transmission Date: 20181010
  Serious: Yes (Hospitalization, Other)
  Sender: FDA-Public Use
  Company Number: US-ZYDUS-020940

PATIENT
  Age: 77 Year
  Sex: Male

DRUGS (2)
  1. AMIODARONE [Suspect]
     Active Substance: AMIODARONE
     Indication: ATRIAL FIBRILLATION
     Route: 065
  2. CYCLOPHOSPHAMIDE. [Interacting]
     Active Substance: CYCLOPHOSPHAMIDE
     Indication: GLOMERULONEPHRITIS RAPIDLY PROGRESSIVE
     Route: 065

REACTIONS (6)
  - Hypoxia [Recovering/Resolving]
  - Pyrexia [Recovering/Resolving]
  - Computerised tomogram thorax abnormal [Recovering/Resolving]
  - Dyspnoea [Recovering/Resolving]
  - Pulmonary toxicity [Recovering/Resolving]
  - Drug interaction [Unknown]
